FAERS Safety Report 5094415-9 (Version None)
Quarter: 2006Q3

REPORT INFORMATION
  Report Type: 
  Country: None (occurrence: None)
  Receive Date: 20060731
  Receipt Date: 20060425
  Transmission Date: 20061208
  Serious: No
  Sender: FDA-Public Use
  Company Number: 2006PV012668

PATIENT
  Age: 66 Year
  Sex: Female
  Weight: 86.1834 kg

DRUGS (3)
  1. BYETTA [Suspect]
     Indication: DIABETES MELLITUS NON-INSULIN-DEPENDENT
     Dosage: SEE IMAGE
     Route: 058
  2. METFORMIN HCL [Concomitant]
  3. GLIPIZIDE [Concomitant]

REACTIONS (5)
  - BLOOD GLUCOSE INCREASED [None]
  - DRUG EFFECT DECREASED [None]
  - INFLUENZA [None]
  - ROAD TRAFFIC ACCIDENT [None]
  - STRESS [None]
